FAERS Safety Report 9946190 (Version 2)
Quarter: 2014Q2

REPORT INFORMATION
  Report Type: Spontaneous
  Country: US (occurrence: US)
  Receive Date: 20140303
  Receipt Date: 20140623
  Transmission Date: 20141212
  Serious: No
  Sender: FDA-Public Use
  Company Number: US-AMGEN-USASP2013078796

PATIENT
  Age: 27 Year
  Sex: Female
  Weight: 120.18 kg

DRUGS (1)
  1. ENBREL [Suspect]
     Indication: RHEUMATOID ARTHRITIS
     Dosage: 50 MG, QWK
     Route: 058
     Dates: start: 20131023

REACTIONS (7)
  - Asthenia [Unknown]
  - Syncope [Unknown]
  - Headache [Unknown]
  - Blister [Unknown]
  - Rash generalised [Unknown]
  - Muscle spasms [Not Recovered/Not Resolved]
  - Influenza [Unknown]
